FAERS Safety Report 25176178 (Version 2)
Quarter: 2025Q2

REPORT INFORMATION
  Report Type: Spontaneous
  Country: PK (occurrence: PK)
  Receive Date: 20250409
  Receipt Date: 20250602
  Transmission Date: 20250717
  Serious: Yes (Other)
  Sender: AMGEN
  Company Number: PK-PFIZER INC-PV202500038496

PATIENT
  Age: 53 Year
  Sex: Female
  Weight: 74 kg

DRUGS (4)
  1. ENBREL [Suspect]
     Active Substance: ETANERCEPT
     Indication: Rheumatoid arthritis
     Dosage: 50 MG, WEEKLY
     Route: 058
     Dates: start: 202403
  2. Silliver [Concomitant]
     Dosage: 200 MG, 2X/DAY (1-0-1)
     Route: 065
  3. FOLIC ACID [Concomitant]
     Active Substance: FOLIC ACID
     Indication: Product used for unknown indication
     Dosage: 10 MG, WEEKLY (EVERY SUNDAY 2 TABLETS)
     Route: 065
  4. METHOTREXATE [Concomitant]
     Active Substance: METHOTREXATE
     Indication: Product used for unknown indication
     Dosage: 7.5 MG, 2X/WEEK (3 TABLETS ON FRIDAY AND 3 ON SATURDAY)
     Route: 065

REACTIONS (6)
  - Rheumatoid arthritis [Unknown]
  - Bursitis [Unknown]
  - Joint effusion [Unknown]
  - Blood pressure increased [Unknown]
  - Haemoglobin decreased [Unknown]
  - Alanine aminotransferase increased [Unknown]

NARRATIVE: CASE EVENT DATE: 20250115
